FAERS Safety Report 20163335 (Version 1)
Quarter: 2021Q4

REPORT INFORMATION
  Report Type: Spontaneous
  Country: FR (occurrence: FR)
  Receive Date: 20211209
  Receipt Date: 20211209
  Transmission Date: 20220304
  Serious: Yes (Hospitalization)
  Sender: FDA-Public Use
  Company Number: FR-SA-SAC20211202001417

PATIENT
  Sex: Female

DRUGS (1)
  1. ALDURAZYME [Suspect]
     Active Substance: LARONIDASE
     Dosage: 100U/G
     Route: 042

REACTIONS (4)
  - Bronchiolitis [Unknown]
  - Hyperthermia [Unknown]
  - Chills [Unknown]
  - Tachypnoea [Unknown]
